FAERS Safety Report 5571037-4 (Version None)
Quarter: 2007Q4

REPORT INFORMATION
  Report Type: 
  Country: None (occurrence: None)
  Receive Date: 20071221
  Receipt Date: 20071220
  Transmission Date: 20080405
  Serious: Yes (Death, Hospitalization)
  Sender: FDA-Public Use
  Company Number: FR-WYE-H01842907

PATIENT
  Sex: Male

DRUGS (5)
  1. CORDARONE [Suspect]
     Indication: ATRIAL FIBRILLATION
     Dosage: 200 MG TABLET, DOSE AND FREQUENCY NOT SPECIFIED
     Route: 048
  2. ZOCOR [Suspect]
     Dosage: DOSE AND FREQUENCY NOT SPECIFIED
     Route: 048
  3. KENZEN [Suspect]
     Indication: HYPERTENSION
     Dosage: 8 MG TABLET, DOSE AND FREQUENCY NOT SPECIFIED
     Route: 048
  4. STILNOX [Suspect]
     Dosage: 10 MG TABLET, DOSE AND FREQUENCY UNKNOWN
     Route: 048
  5. PREVISCAN [Suspect]
     Indication: ATRIAL FIBRILLATION
     Dosage: 20 MG TABLET, DOSE AND FREQUENCY NOT SPECIFIED
     Route: 048
     Dates: end: 20070811

REACTIONS (3)
  - CEREBRAL HAEMORRHAGE [None]
  - INTRAVENTRICULAR HAEMORRHAGE [None]
  - SUBARACHNOID HAEMORRHAGE [None]
